FAERS Safety Report 10714582 (Version 1)
Quarter: 2015Q1

REPORT INFORMATION
  Report Type: Spontaneous
  Country: CN (occurrence: CN)
  Receive Date: 20150115
  Receipt Date: 20150115
  Transmission Date: 20150721
  Serious: Yes (Disabling, Other)
  Sender: FDA-Public Use
  Company Number: CN-PFIZER INC-2015016476

PATIENT
  Age: 50 Year
  Sex: Female

DRUGS (1)
  1. DIFLUCAN [Suspect]
     Active Substance: FLUCONAZOLE
     Dosage: 800 MG, 1X/DAY
     Route: 041
     Dates: start: 20131203, end: 20131206

REACTIONS (2)
  - Intestinal obstruction [Recovered/Resolved]
  - Gastrointestinal haemorrhage [None]

NARRATIVE: CASE EVENT DATE: 20131206
